FAERS Safety Report 8893156 (Version 1)
Quarter: 2012Q4

REPORT INFORMATION
  Report Type: Spontaneous
  Country: US (occurrence: None)
  Receive Date: 20121106
  Receipt Date: 20121106
  Transmission Date: 20130627
  Serious: Yes (Life-Threatening, Hospitalization)
  Sender: FDA-Public Use
  Company Number: None

PATIENT
  Sex: Female
  Weight: 89 kg

DRUGS (1)
  1. DIAZEPAM [Suspect]
     Dosage: 10 mg daily po
     Route: 048
     Dates: start: 20121023, end: 20121101

REACTIONS (6)
  - Asthenia [None]
  - Incontinence [None]
  - Movement disorder [None]
  - Slow response to stimuli [None]
  - Activities of daily living impaired [None]
  - Toxicity to various agents [None]
